FAERS Safety Report 8535129-X (Version None)
Quarter: 2012Q3

REPORT INFORMATION
  Report Type: 
  Country: None (occurrence: None)
  Receive Date: 20120724
  Receipt Date: 20120718
  Transmission Date: 20120928
  Serious: No
  Sender: FDA-Public Use
  Company Number: US-PFIZER INC-2012137355

PATIENT
  Sex: Male

DRUGS (8)
  1. PRILOSEC [Suspect]
     Indication: DYSPEPSIA
     Dosage: UNK
     Dates: start: 20111001, end: 20120401
  2. VIAGRA [Suspect]
  3. VESICARE [Suspect]
     Dosage: 5 MG, UNK
     Route: 048
     Dates: start: 20120301, end: 20120401
  4. METAMUCIL ^SEARLE^ [Concomitant]
  5. SANCTURA XR [Suspect]
     Dosage: UNK
     Dates: start: 20120509
  6. VESICARE [Suspect]
     Indication: MICTURITION URGENCY
     Dosage: 10 MG, UID/QD
     Dates: start: 20111001, end: 20120301
  7. CIALIS [Suspect]
  8. LEVAQUIN [Suspect]
     Indication: CYSTITIS

REACTIONS (8)
  - NAUSEA [None]
  - ABNORMAL FAECES [None]
  - ARTHRALGIA [None]
  - VOMITING [None]
  - CONSTIPATION [None]
  - DIARRHOEA [None]
  - FLATULENCE [None]
  - CYSTITIS [None]
